FAERS Safety Report 10143255 (Version 2)
Quarter: 2014Q2

REPORT INFORMATION
  Report Type: Report from Study
  Country: US (occurrence: US)
  Receive Date: 20140430
  Receipt Date: 20140611
  Transmission Date: 20141212
  Serious: Yes (Hospitalization, Other)
  Sender: FDA-Public Use
  Company Number: US-IAC KOREA XML-USA-2014-0113306

PATIENT
  Sex: Female

DRUGS (5)
  1. OXY CR TAB [Suspect]
     Indication: FIBROMYALGIA
     Dosage: 80 MG, Q8H
     Route: 048
     Dates: start: 201012, end: 201103
  2. SOMA [Suspect]
     Indication: MUSCLE RELAXANT THERAPY
     Route: 048
  3. XANAX [Suspect]
     Indication: ANXIETY
     Route: 048
  4. XANAX [Suspect]
     Indication: DEPRESSION
  5. ROXICODONE [Suspect]
     Indication: BREAKTHROUGH PAIN
     Route: 048

REACTIONS (2)
  - Substance abuse [Unknown]
  - Investigation [Unknown]
